FAERS Safety Report 5262897-5 (Version None)
Quarter: 2007Q1

REPORT INFORMATION
  Report Type: 
  Country: None (occurrence: None)
  Receive Date: 20070312
  Receipt Date: 20070302
  Transmission Date: 20070707
  Serious: Yes (Other)
  Sender: FDA-Public Use
  Company Number: GB-ALLERGAN-0702383US

PATIENT
  Age: 31 Year
  Sex: Female

DRUGS (1)
  1. BOTOX 100 UNITS [Suspect]
     Indication: HYPERHIDROSIS
     Dosage: 50 UNITS, SINGLE
     Route: 058
     Dates: start: 20061017, end: 20061017

REACTIONS (2)
  - ABORTION SPONTANEOUS [None]
  - PREGNANCY [None]
